FAERS Safety Report 5187852-5 (Version None)
Quarter: 2006Q4

REPORT INFORMATION
  Report Type: 
  Country: None (occurrence: None)
  Receive Date: 20061221
  Receipt Date: 20060913
  Transmission Date: 20070319
  Serious: No
  Sender: FDA-Public Use
  Company Number: US-GLAXOSMITHKLINE-A0620054A

PATIENT
  Age: 42 Year
  Sex: Female

DRUGS (2)
  1. AVANDARYL [Suspect]
     Route: 048
     Dates: start: 20060823
  2. FORTAMET [Concomitant]

REACTIONS (2)
  - BLOOD GLUCOSE DECREASED [None]
  - HOT FLUSH [None]
